FAERS Safety Report 17386459 (Version 2)
Quarter: 2020Q1

REPORT INFORMATION
  Report Type: Report from Study
  Country: PA (occurrence: PA)
  Receive Date: 20200206
  Receipt Date: 20200207
  Transmission Date: 20200409
  Serious: Yes (Other)
  Sender: FDA-Public Use
  Company Number: NVSC2020PA014774

PATIENT
  Age: 70 Year
  Sex: Female

DRUGS (4)
  1. CRESTOR [Concomitant]
     Active Substance: ROSUVASTATIN CALCIUM
     Indication: PRODUCT USED FOR UNKNOWN INDICATION
     Dosage: UNK
     Route: 065
  2. EXFORGE [Suspect]
     Active Substance: AMLODIPINE BESYLATE\VALSARTAN
     Dosage: 80/5 MG
     Route: 065
  3. EXFORGE [Suspect]
     Active Substance: AMLODIPINE BESYLATE\VALSARTAN
     Dosage: 160/5 MG
     Route: 065
  4. EXFORGE [Suspect]
     Active Substance: AMLODIPINE BESYLATE\VALSARTAN
     Indication: PRODUCT USED FOR UNKNOWN INDICATION
     Dosage: 320/5 MG
     Route: 065

REACTIONS (8)
  - Drug ineffective [Unknown]
  - Ischaemia [Recovering/Resolving]
  - Cerebrovascular accident [Unknown]
  - Hypotension [Unknown]
  - Mobility decreased [Unknown]
  - Dyspnoea [Unknown]
  - Hypoacusis [Unknown]
  - Fatigue [Unknown]
